FAERS Safety Report 26106421 (Version 1)
Quarter: 2025Q4

REPORT INFORMATION
  Report Type: Spontaneous
  Country: EU (occurrence: EU)
  Receive Date: 20251201
  Receipt Date: 20251201
  Transmission Date: 20260118
  Serious: Yes (Other)
  Sender: ROCHE
  Company Number: EU-ROCHE-10000444029

PATIENT
  Age: 1 Month
  Sex: Male
  Weight: 2.54 kg

DRUGS (3)
  1. EMICIZUMAB [Suspect]
     Active Substance: EMICIZUMAB
     Indication: Factor VIII deficiency
     Route: 065
     Dates: start: 20220504
  2. EFMOROCTOCOG ALFA [Concomitant]
     Active Substance: EFMOROCTOCOG ALFA
     Route: 065
  3. ELOCTA [Concomitant]
     Active Substance: EFMOROCTOCOG ALFA
     Route: 065

REACTIONS (5)
  - Skull fracture [Unknown]
  - Swelling [Unknown]
  - Blood disorder [Unknown]
  - Swelling [Unknown]
  - Blood disorder [Unknown]

NARRATIVE: CASE EVENT DATE: 20220523
